FAERS Safety Report 17615214 (Version 1)
Quarter: 2020Q2

REPORT INFORMATION
  Report Type: Spontaneous
  Country: US (occurrence: US)
  Receive Date: 20200402
  Receipt Date: 20200402
  Transmission Date: 20200713
  Serious: No
  Sender: FDA-Public Use
  Company Number: US-PFIZER INC-2020136259

PATIENT
  Age: 80 Year
  Sex: Female
  Weight: 90.72 kg

DRUGS (5)
  1. ALTACE [Suspect]
     Active Substance: RAMIPRIL
     Indication: HYPERTENSION
     Dosage: 5 MG, AS NEEDED
  2. ALTACE [Suspect]
     Active Substance: RAMIPRIL
     Dosage: 5 MG, 1X/DAY
  3. HYDROCHLOROTHIAZIDE. [Concomitant]
     Active Substance: HYDROCHLOROTHIAZIDE
     Indication: HYPERTENSION
     Dosage: 25 MG, 1X/DAY
  4. SYNTHROID [Concomitant]
     Active Substance: LEVOTHYROXINE SODIUM
     Indication: THYROIDECTOMY
     Dosage: 2-100MCG TABLETS TAKEN DAILY
  5. ALTACE [Suspect]
     Active Substance: RAMIPRIL
     Dosage: 2.5 MG, 2X/DAY

REACTIONS (4)
  - Blood pressure inadequately controlled [Recovering/Resolving]
  - Tachycardia [Recovering/Resolving]
  - Palpitations [Recovering/Resolving]
  - Off label use [Unknown]
